FAERS Safety Report 21902679 (Version 1)
Quarter: 2023Q1

REPORT INFORMATION
  Report Type: Spontaneous
  Country: DE (occurrence: DE)
  Receive Date: 20230124
  Receipt Date: 20230124
  Transmission Date: 20230417
  Serious: Yes (Other)
  Sender: FDA-Public Use
  Company Number: DE-ROCHE-3223653

PATIENT
  Sex: Male

DRUGS (14)
  1. LENALIDOMIDE [Suspect]
     Active Substance: LENALIDOMIDE
     Indication: Diffuse large B-cell lymphoma
     Dosage: WITH TAFASITAMAB
     Dates: start: 20220601, end: 20221001
  2. DEXAMETHASONE [Suspect]
     Active Substance: DEXAMETHASONE
     Indication: Diffuse large B-cell lymphoma
     Dosage: SECOND LINE WITH RITUXIMAB AND GDP
  3. CYCLOPHOSPHAMIDE\DOXORUBICIN\PREDNISONE\VINCRISTINE [Suspect]
     Active Substance: CYCLOPHOSPHAMIDE\DOXORUBICIN\PREDNISONE\VINCRISTINE
     Indication: Diffuse large B-cell lymphoma
     Dosage: FIRST LINE WITH RITUXIMAB
     Dates: start: 201901, end: 20190701
  4. POLATUZUMAB VEDOTIN [Suspect]
     Active Substance: POLATUZUMAB VEDOTIN
     Indication: Diffuse large B-cell lymphoma
     Dosage: THIRD LINE TWICE WITH RITUXIMAB?THIRD LINE ONCE WITH RITUXIMAB AND BENDAMUSTINE
     Dates: start: 20201101, end: 20210101
  5. BEAM [Suspect]
     Active Substance: SODIUM FLUORIDE
     Indication: Diffuse large B-cell lymphoma
     Dosage: THIRD LINE TWICE WITH RITUXIMAB
  6. GEMCITABINE [Suspect]
     Active Substance: GEMCITABINE
     Indication: Diffuse large B-cell lymphoma
     Dosage: FIRST LINE WITH RITUXIMAB
  7. MABTHERA [Suspect]
     Active Substance: RITUXIMAB
     Indication: Diffuse large B-cell lymphoma
     Dosage: FIRST LINE WITH CHOP
     Dates: start: 20190101, end: 20190701
  8. MABTHERA [Suspect]
     Active Substance: RITUXIMAB
     Dosage: THIRD LINE TWICE WITH POLATUZUMAB
     Dates: start: 20201101, end: 20210101
  9. MABTHERA [Suspect]
     Active Substance: RITUXIMAB
     Dosage: THIRD LINE ONCE WITH POLATUZUMAB AND BENDAMUSTINE
     Dates: start: 20201101, end: 20210101
  10. MABTHERA [Suspect]
     Active Substance: RITUXIMAB
     Dosage: SECOND LINE WITH GDP AND HD-BEAM
     Dates: start: 20200501, end: 20200801
  11. CISPLATIN [Suspect]
     Active Substance: CISPLATIN
     Indication: Diffuse large B-cell lymphoma
     Dosage: SECOND LINE WITH RITUXIMAB AND HD-BEAM
  12. TAFASITAMAB-CXIX [Suspect]
     Active Substance: TAFASITAMAB-CXIX
     Indication: Diffuse large B-cell lymphoma
     Dosage: WITH LENALIDOMIDE
     Dates: start: 20220601, end: 20221001
  13. BENDAMUSTINE [Concomitant]
     Active Substance: BENDAMUSTINE
     Indication: Diffuse large B-cell lymphoma
     Dosage: ONCE WITH POLATUZUMAB AND RITUXIMAB
     Dates: start: 20201101, end: 20210101
  14. BENDAMUSTINE [Concomitant]
     Active Substance: BENDAMUSTINE
     Indication: Diffuse large B-cell lymphoma

REACTIONS (4)
  - Lymphoma [Not Recovered/Not Resolved]
  - Non-Hodgkin^s lymphoma [Unknown]
  - Hepatitis C [Recovered/Resolved]
  - Hepatitis B [Unknown]
